FAERS Safety Report 24619145 (Version 1)
Quarter: 2024Q4

REPORT INFORMATION
  Report Type: Spontaneous
  Country: US (occurrence: None)
  Receive Date: 20241114
  Receipt Date: 20241114
  Transmission Date: 20250115
  Serious: Yes (Disabling)
  Sender: Public
  Company Number: None

PATIENT
  Age: 49 Year
  Sex: Female
  Weight: 51.75 kg

DRUGS (4)
  1. LEVOFLOXACIN [Suspect]
     Active Substance: LEVOFLOXACIN
     Indication: Pneumonia
     Dosage: OTHER QUANTITY : 1 CAPSULE(S);?FREQUENCY : DAILY;?
     Route: 048
     Dates: start: 20241106, end: 20241110
  2. MIRTAZAPINE [Concomitant]
     Active Substance: MIRTAZAPINE
  3. VITAMINS [Concomitant]
     Active Substance: VITAMINS
  4. COLLAGEN [Concomitant]
     Active Substance: COLLAGEN

REACTIONS (3)
  - Arthralgia [None]
  - Tendon pain [None]
  - Impaired work ability [None]

NARRATIVE: CASE EVENT DATE: 20241107
